FAERS Safety Report 9207380 (Version 1)
Quarter: 2013Q1

REPORT INFORMATION
  Report Type: Spontaneous
  Country: US (occurrence: None)
  Receive Date: 20120817
  Receipt Date: 20120817
  Transmission Date: 20140127
  Serious: Yes (Hospitalization)
  Sender: FDA-Public Use
  Company Number: ADR-2012-00399

PATIENT
  Sex: 0

DRUGS (3)
  1. BACLOFEN [Suspect]
  2. BACLOFEN [Suspect]
  3. BACLOFEN [Suspect]
     Indication: SPINAL CORD DISORDER

REACTIONS (4)
  - Infection [None]
  - Pyrexia [None]
  - Delirium [None]
  - Muscle spasticity [None]
